FAERS Safety Report 6933663-7 (Version None)
Quarter: 2010Q3

REPORT INFORMATION
  Report Type: 
  Country: None (occurrence: None)
  Receive Date: 20100820
  Receipt Date: 20100813
  Transmission Date: 20110219
  Serious: Yes (Death, Hospitalization)
  Sender: FDA-Public Use
  Company Number: NL-PFIZER INC-2008026116

PATIENT
  Age: 56 Year
  Sex: Female

DRUGS (12)
  1. SUNITINIB MALATE [Suspect]
     Indication: NON-SMALL CELL LUNG CANCER METASTATIC
     Dosage: ONCE DAILY
     Route: 048
     Dates: start: 20080204, end: 20080319
  2. ERLOTINIB HYDROCHLORIDE [Suspect]
     Indication: NON-SMALL CELL LUNG CANCER METASTATIC
     Dosage: 150 MG, 1X/DAY
     Route: 048
     Dates: start: 20080204, end: 20080319
  3. MS CONTIN [Concomitant]
     Indication: PAIN
     Dosage: UNK
  4. DICLOFENAC [Concomitant]
     Indication: PAIN
     Dosage: 50 MG, 3X/DAY
  5. PARACETAMOL [Concomitant]
     Dosage: 1 G, 4X/DAY
  6. METOPROLOL [Concomitant]
     Indication: HYPERTENSION
     Dosage: 100 MG, 1X/DAY
  7. SLOW-K [Concomitant]
     Indication: HYPOKALAEMIA
     Dosage: UNK
  8. LYRICA [Concomitant]
     Indication: BACK PAIN
     Dosage: 300 MG, 2X/DAY
  9. OMEPRAZOLE [Concomitant]
     Dosage: 40 MG, 2X/DAY
  10. LOPERAMIDE [Concomitant]
     Indication: DIARRHOEA
     Dosage: 2 MG, 2X/DAY
  11. SPIRIVA [Concomitant]
     Indication: CHRONIC OBSTRUCTIVE PULMONARY DISEASE
     Dosage: 18 UG, 1X/DAY
  12. ACETYLCYSTEINE [Concomitant]
     Dosage: UNK

REACTIONS (1)
  - RENAL FAILURE [None]
